FAERS Safety Report 5593267-8 (Version None)
Quarter: 2008Q1

REPORT INFORMATION
  Report Type: 
  Country: None (occurrence: None)
  Receive Date: 20080114
  Receipt Date: 20080104
  Transmission Date: 20080703
  Serious: Yes (Other)
  Sender: FDA-Public Use
  Company Number: 2008000687

PATIENT
  Sex: Male

DRUGS (1)
  1. SUDAFED S.A. [Suspect]
     Dosage: ORAL
     Route: 048
     Dates: start: 19880101

REACTIONS (3)
  - ABNORMAL BEHAVIOUR [None]
  - ANXIETY [None]
  - CHEMICAL POISONING [None]
